FAERS Safety Report 4972191-5 (Version None)
Quarter: 2006Q2

REPORT INFORMATION
  Report Type: 
  Country: None (occurrence: None)
  Receive Date: 20060413
  Receipt Date: 20051107
  Transmission Date: 20061013
  Serious: Yes (Hospitalization)
  Sender: FDA-Public Use
  Company Number: JP-GLAXOSMITHKLINE-B0399816A

PATIENT
  Age: 64 Year
  Sex: Female

DRUGS (14)
  1. ZEFIX [Suspect]
     Indication: HEPATITIS B
     Dosage: 100MG PER DAY
     Route: 048
     Dates: start: 20040312
  2. ADEFOVIR DIPIVOXIL [Concomitant]
     Indication: HEPATIC FUNCTION ABNORMAL
     Dosage: 10MG PER DAY
     Route: 048
     Dates: start: 20050706, end: 20060222
  3. ISODINE GARGLE [Concomitant]
     Route: 002
  4. MYSLEE [Concomitant]
     Route: 048
  5. ZANTAC [Concomitant]
     Route: 048
  6. KETOPROFEN [Concomitant]
     Route: 062
  7. ENDOXAN [Concomitant]
     Route: 048
  8. ADRIACIN [Concomitant]
  9. ONCOVIN [Concomitant]
     Route: 042
  10. PREDONINE [Concomitant]
     Route: 048
  11. DIFLUCAN [Concomitant]
     Route: 048
  12. BAKTAR [Concomitant]
     Route: 048
  13. MAGLAX [Concomitant]
     Route: 048
  14. VICCILLIN [Concomitant]
     Route: 048

REACTIONS (3)
  - HEPATIC FUNCTION ABNORMAL [None]
  - HEPATIC NEOPLASM MALIGNANT [None]
  - HEPATIC NEOPLASM MALIGNANT RECURRENT [None]
